FAERS Safety Report 12296121 (Version 1)
Quarter: 2016Q2

REPORT INFORMATION
  Report Type: Spontaneous
  Country: US (occurrence: US)
  Receive Date: 20160422
  Receipt Date: 20160422
  Transmission Date: 20160815
  Serious: No
  Sender: FDA-Public Use
  Company Number: US-BAYER-2016-076164

PATIENT
  Age: 65 Year
  Sex: Male
  Weight: 72.57 kg

DRUGS (4)
  1. DORIPENEM [Concomitant]
     Active Substance: DORIPENEM
     Indication: NOCARDIOSIS
     Dosage: 1500 MG, TID
  2. AVELOX [Suspect]
     Active Substance: MOXIFLOXACIN HYDROCHLORIDE
     Dosage: 400 MG, QD
     Route: 042
     Dates: end: 20160412
  3. ZYVOX [Suspect]
     Active Substance: LINEZOLID
     Indication: NOCARDIOSIS
     Dosage: UNK
  4. AMIKACIN [Concomitant]
     Active Substance: AMIKACIN
     Indication: NOCARDIOSIS
     Dosage: 1080 MG, QD
     Route: 042

REACTIONS (2)
  - Rash [None]
  - Urticaria [None]
